FAERS Safety Report 21490903 (Version 1)
Quarter: 2022Q4

REPORT INFORMATION
  Report Type: Spontaneous
  Country: US (occurrence: US)
  Receive Date: 20221021
  Receipt Date: 20221021
  Transmission Date: 20230113
  Serious: No
  Sender: FDA-Public Use
  Company Number: US-BAUSCHBL-2022BNL001090

PATIENT
  Sex: Female

DRUGS (2)
  1. NEOMYCIN AND POLYMYXIN B SULFATES AND HYDROCORTISONE [Suspect]
     Active Substance: HYDROCORTISONE\NEOMYCIN SULFATE\POLYMYXIN B SULFATE
     Indication: Product used for unknown indication
     Route: 047
  2. POLYMYXIN B SULFATE AND TRIMETHOPRIM [Suspect]
     Active Substance: POLYMYXIN B SULFATE\TRIMETHOPRIM SULFATE
     Indication: Product used for unknown indication
     Route: 065

REACTIONS (3)
  - Crying [Unknown]
  - Wrong product administered [Unknown]
  - Product packaging issue [Unknown]

NARRATIVE: CASE EVENT DATE: 20221001
